FAERS Safety Report 9400263 (Version 2)
Quarter: 2013Q3

REPORT INFORMATION
  Report Type: Spontaneous
  Country: ES (occurrence: None)
  Receive Date: 20130627
  Receipt Date: 20130712
  Transmission Date: 20140515
  Serious: Yes (Death, Life-Threatening, Hospitalization)
  Sender: FDA-Public Use
  Company Number: 2013MPI00337

PATIENT
  Age: 38 Year
  Sex: Male
  Weight: 80 kg

DRUGS (4)
  1. BRENTUXIMAB VEDOTIN [Suspect]
     Indication: HODGKIN^S DISEASE
     Dosage: QCYCLE,
     Route: 042
     Dates: start: 20120322, end: 20120503
  2. PREDNISONE (PREDNISONE ACETATE) [Concomitant]
  3. MIDAZOLAM (MIDAZOLAM HYDROCHLORIDE) [Concomitant]
  4. VORICONAZOLE (VORICONAZOLE) [Concomitant]

REACTIONS (6)
  - Multi-organ failure [None]
  - Respiratory distress [None]
  - Staphylococcal sepsis [None]
  - Pneumonia cytomegaloviral [None]
  - Pneumothorax [None]
  - Pneumomediastinum [None]
